FAERS Safety Report 19456392 (Version 1)
Quarter: 2021Q2

REPORT INFORMATION
  Report Type: Spontaneous
  Country: DE (occurrence: DE)
  Receive Date: 20210624
  Receipt Date: 20210624
  Transmission Date: 20210717
  Serious: Yes (Hospitalization)
  Sender: FDA-Public Use
  Company Number: DE-TEVA-2021-DE-1924816

PATIENT
  Age: 41 Year
  Sex: Female
  Weight: 60 kg

DRUGS (5)
  1. LEVETIRACETAM. [Suspect]
     Active Substance: LEVETIRACETAM
     Dosage: 2000 MILLIGRAM DAILY;
     Dates: start: 20210212, end: 20210212
  2. LEVETIRACETAM. [Suspect]
     Active Substance: LEVETIRACETAM
     Indication: PRODUCT USED FOR UNKNOWN INDICATION
     Dosage: 2000 MILLIGRAM DAILY; THERAPY START DATE ASKU
     Dates: end: 20210211
  3. FYCOMPA [Suspect]
     Active Substance: PERAMPANEL
     Indication: PRODUCT USED FOR UNKNOWN INDICATION
     Dosage: 12 MILLIGRAM DAILY; THERAPY START DATE ASKU
     Route: 048
     Dates: end: 20210211
  4. FYCOMPA [Suspect]
     Active Substance: PERAMPANEL
     Dosage: 3 ? 4 12 MG TABLETS
     Route: 048
     Dates: start: 20210212, end: 20210212
  5. LACOSAMIDE. [Suspect]
     Active Substance: LACOSAMIDE
     Indication: PRODUCT USED FOR UNKNOWN INDICATION
     Dosage: FIRST DOSE 1500 MG AND SECOND DOSE 1000 MG DAILY,THERAPY START DATE ASKU

REACTIONS (7)
  - Abnormal behaviour [Unknown]
  - Intentional overdose [Recovered/Resolved]
  - Dehydration [Unknown]
  - Suicidal ideation [Unknown]
  - Hypotension [Recovered/Resolved]
  - Restlessness [Unknown]
  - Agitation [Recovering/Resolving]

NARRATIVE: CASE EVENT DATE: 202102
